FAERS Safety Report 5706572-9 (Version None)
Quarter: 2008Q2

REPORT INFORMATION
  Report Type: 
  Country: None (occurrence: None)
  Receive Date: 20080415
  Receipt Date: 20080402
  Transmission Date: 20081010
  Serious: Yes (Other)
  Sender: FDA-Public Use
  Company Number: US-ELI_LILLY_AND_COMPANY-US200804001472

PATIENT
  Age: 68 Year
  Sex: Male

DRUGS (10)
  1. GEMZAR [Suspect]
     Indication: ADENOCARCINOMA PANCREAS
     Dosage: 920 MG/M2, OTHER
     Dates: start: 20040401, end: 20040701
  2. ATORVASTATIN [Concomitant]
  3. DILTIAZEM [Concomitant]
  4. GEMFIBROZIL [Concomitant]
  5. ROFECOXIB [Concomitant]
  6. INSULIN [Concomitant]
  7. LORAZEPAM [Concomitant]
  8. METOCLOPRAMIDE [Concomitant]
  9. MULTI-VITAMIN [Concomitant]
  10. DOCUSATE SODIUM [Concomitant]
     Dosage: UNK, AS NEEDED

REACTIONS (2)
  - CHOLANGITIS [None]
  - VASCULITIS NECROTISING [None]
